FAERS Safety Report 5648597-8 (Version None)
Quarter: 2008Q1

REPORT INFORMATION
  Report Type: 
  Country: None (occurrence: None)
  Receive Date: 20080304
  Receipt Date: 20080227
  Transmission Date: 20080703
  Serious: Yes (Hospitalization)
  Sender: FDA-Public Use
  Company Number: DE-BRISTOL-MYERS SQUIBB COMPANY-14058853

PATIENT
  Age: 77 Year
  Sex: Male

DRUGS (4)
  1. CETUXIMAB [Suspect]
     Indication: COLORECTAL CANCER METASTATIC
     Dosage: CETUXIMAB 5MG/ML, RECENT INFUSION ON 09/JAN/08
     Route: 042
     Dates: start: 20071212
  2. OXALIPLATIN [Suspect]
     Indication: COLORECTAL CANCER METASTATIC
     Dosage: RECENT INFUSION ON 09/JAN/08
     Dates: start: 20071212
  3. FLUOROURACIL [Suspect]
     Indication: COLORECTAL CANCER METASTATIC
     Dosage: RECENT INFUSION ON 09/JAN/08
     Dates: start: 20071212
  4. FOLINIC ACID [Suspect]
     Indication: COLORECTAL CANCER METASTATIC
     Dosage: RECENT INFUSION ON 09/JAN/08
     Dates: start: 20071212

REACTIONS (1)
  - DIARRHOEA [None]
